FAERS Safety Report 9728398 (Version 2)
Quarter: 2013Q4

REPORT INFORMATION
  Report Type: Not Available
  Country: FR (occurrence: FR)
  Receive Date: 20131204
  Receipt Date: 20131220
  Transmission Date: 20140711
  Serious: Yes (Hospitalization)
  Sender: FDA-Public Use
  Company Number: FR-ASTELLAS-2013EU010568

PATIENT
  Age: 21 Year
  Sex: Female

DRUGS (6)
  1. VESICARE [Suspect]
     Dosage: 1 DF, UID/QD
     Route: 048
  2. ATARAX /00058401/ [Suspect]
     Dosage: 2 DF, UID/QD
     Route: 065
     Dates: start: 201309
  3. THIOCOLCHICOSIDE SANDOZ [Suspect]
     Dosage: 3 DF, UID/QD
     Route: 065
     Dates: start: 201309
  4. LYRICA [Suspect]
     Dosage: UNK
     Route: 065
  5. LIORESAL [Suspect]
     Dosage: 2 DF, UID/QD
     Route: 048
  6. PRAXINOR /00276601/ [Suspect]
     Dosage: 2 DF, UID/QD
     Route: 048

REACTIONS (1)
  - Thrombocytopenia [Recovered/Resolved]
